FAERS Safety Report 8437639-2 (Version None)
Quarter: 2012Q2

REPORT INFORMATION
  Report Type: 
  Country: None (occurrence: None)
  Receive Date: 20120614
  Receipt Date: 20120426
  Transmission Date: 20120825
  Serious: No
  Sender: FDA-Public Use
  Company Number: US-AMGEN-USASP2012026414

PATIENT
  Age: 82 Year
  Sex: Female

DRUGS (10)
  1. PROLIA [Suspect]
     Indication: OSTEOPOROSIS POSTMENOPAUSAL
     Dosage: 60 MG, Q6MO
     Dates: start: 20110101
  2. FOSAMAX [Concomitant]
     Dosage: UNK
  3. COUMADIN [Concomitant]
     Dosage: UNK
  4. DILTIAZEM [Concomitant]
     Dosage: UNK
  5. VITAMIN D [Concomitant]
     Dosage: UNK
  6. ZOCOR [Concomitant]
     Dosage: UNK
  7. SYNTHROID [Concomitant]
     Dosage: UNK
  8. MULTI-VITAMINS [Concomitant]
     Dosage: UNK
  9. DIGOXIN [Concomitant]
     Dosage: UNK
  10. CALCIUM CARBONATE [Concomitant]
     Dosage: UNK

REACTIONS (4)
  - INCORRECT STORAGE OF DRUG [None]
  - FALL [None]
  - WRIST FRACTURE [None]
  - WALKING AID USER [None]
